FAERS Safety Report 22772390 (Version 3)
Quarter: 2024Q2

REPORT INFORMATION
  Report Type: Spontaneous
  Country: TW (occurrence: TW)
  Receive Date: 20230801
  Receipt Date: 20240507
  Transmission Date: 20240715
  Serious: Yes (Other)
  Sender: FDA-Public Use
  Company Number: TW-002147023-NVSC2023TW166456

PATIENT
  Age: 45 Year
  Sex: Female

DRUGS (3)
  1. GILENYA [Suspect]
     Active Substance: FINGOLIMOD HYDROCHLORIDE
     Indication: Multiple sclerosis
     Dosage: 0.5 MG, QD
     Route: 048
     Dates: start: 201210, end: 201909
  2. GILENYA [Suspect]
     Active Substance: FINGOLIMOD HYDROCHLORIDE
     Dosage: 0.5 MG, QOD
     Route: 048
     Dates: start: 201909, end: 202003
  3. DIMETHYL FUMARATE [Concomitant]
     Active Substance: DIMETHYL FUMARATE
     Indication: Product used for unknown indication
     Dosage: 240 MG, BID
     Route: 065
     Dates: start: 202004, end: 202008

REACTIONS (11)
  - Lymphopenia [Recovered/Resolved]
  - Multiple sclerosis relapse [Unknown]
  - Muscular weakness [Unknown]
  - Gait spastic [Unknown]
  - Sensory disturbance [Unknown]
  - Micturition urgency [Unknown]
  - Memory impairment [Unknown]
  - Neuralgia [Unknown]
  - Allodynia [Unknown]
  - Depression [Unknown]
  - Off label use [Unknown]

NARRATIVE: CASE EVENT DATE: 20140501
